FAERS Safety Report 7527969-0 (Version None)
Quarter: 2011Q2

REPORT INFORMATION
  Report Type: 
  Country: None (occurrence: None)
  Receive Date: 20110607
  Receipt Date: 20031105
  Transmission Date: 20111010
  Serious: Yes (Death)
  Sender: FDA-Public Use
  Company Number: PHBS2003NZ14656

PATIENT
  Sex: Male

DRUGS (6)
  1. DOXAZOSIN MESYLATE [Concomitant]
     Dosage: 5 MG, QD
  2. CITALOPRAM HYDROBROMIDE [Concomitant]
     Dosage: 10 MG, QD
  3. HALOPERIDOL [Concomitant]
     Dosage: 5 MG, QD
  4. CLOZARIL [Suspect]
     Indication: SCHIZOPHRENIA
     Dosage: 100 MG, QD
     Route: 048
     Dates: start: 20010122, end: 20031105
  5. PHENOBARBITAL TAB [Concomitant]
     Dosage: 30 MG, QD
  6. PHENYTOIN [Concomitant]
     Dosage: 200 MG, BID

REACTIONS (2)
  - MYOCARDIAL INFARCTION [None]
  - SEPSIS [None]
